FAERS Safety Report 18098855 (Version 1)
Quarter: 2020Q3

REPORT INFORMATION
  Report Type: Report from Study
  Country: CA (occurrence: CA)
  Receive Date: 20200731
  Receipt Date: 20200731
  Transmission Date: 20201103
  Serious: Yes (Hospitalization, Other)
  Sender: FDA-Public Use
  Company Number: CA-PFIZER INC-2020287525

PATIENT
  Age: 57 Year
  Sex: Male

DRUGS (15)
  1. SANDOSTATIN LAR DEPOT [Suspect]
     Active Substance: OCTREOTIDE ACETATE
     Indication: NEUROENDOCRINE TUMOUR
     Dosage: 30 MG, 1 EVERY 1 MONTHS
     Route: 030
  2. SANDOSTATIN LAR DEPOT [Suspect]
     Active Substance: OCTREOTIDE ACETATE
     Dosage: 50 MG, 1 EVERY 1 MONTHS
     Route: 030
  3. SANDOSTATIN LAR DEPOT [Suspect]
     Active Substance: OCTREOTIDE ACETATE
     Indication: NEUROENDOCRINE TUMOUR
     Dosage: 80 MG, 1 EVERY 4 WEEKS
     Route: 030
  4. SANDOSTATIN LAR DEPOT [Suspect]
     Active Substance: OCTREOTIDE ACETATE
     Dosage: 60 MG
     Route: 030
  5. SANDOSTATIN LAR DEPOT [Suspect]
     Active Substance: OCTREOTIDE ACETATE
     Dosage: 30 MG, 1 EVERY 1 MONTHS
     Route: 030
  6. SANDOSTATIN LAR DEPOT [Suspect]
     Active Substance: OCTREOTIDE ACETATE
     Dosage: 60 MG, 1 EVERY 1 MONTHS
     Route: 030
  7. DIAMICRON [Concomitant]
     Active Substance: GLICLAZIDE
     Dosage: 60 MG, 1X/DAY
     Route: 065
  8. SOLU?CORTEF [Suspect]
     Active Substance: HYDROCORTISONE SODIUM SUCCINATE
     Indication: DRUG HYPERSENSITIVITY
     Dosage: UNK
     Route: 065
  9. SANDOSTATIN LAR DEPOT [Suspect]
     Active Substance: OCTREOTIDE ACETATE
     Dosage: 30 MG, 1 EVERY 3 WEEKS
     Route: 030
  10. SANDOSTATIN [Suspect]
     Active Substance: OCTREOTIDE ACETATE
     Indication: NEUROENDOCRINE TUMOUR
     Dosage: 200 UG, 3 EVERY 1 DAYS
     Route: 058
  11. SANDOSTATIN LAR DEPOT [Suspect]
     Active Substance: OCTREOTIDE ACETATE
     Dosage: 30 MG, 1 EVERY 4 WEEKS
     Route: 030
  12. SANDOSTATIN LAR DEPOT [Suspect]
     Active Substance: OCTREOTIDE ACETATE
     Dosage: 50 MG, 1 EVERY 1 MONTHS
     Route: 030
  13. SANDOSTATIN LAR DEPOT [Suspect]
     Active Substance: OCTREOTIDE ACETATE
     Dosage: 80 MG
     Route: 030
  14. SANDOSTATIN LAR DEPOT [Suspect]
     Active Substance: OCTREOTIDE ACETATE
     Dosage: 40 MG, 1 EVERY 1 MONTHS
     Route: 065
  15. PANTOLOC [PANTOPRAZOLE] [Concomitant]
     Active Substance: PANTOPRAZOLE SODIUM
     Dosage: 40 MG, 1X/DAY
     Route: 048

REACTIONS (65)
  - Blood urine present [Unknown]
  - Diarrhoea [Unknown]
  - Incoherent [Unknown]
  - Mood altered [Unknown]
  - Tachycardia [Unknown]
  - Weight decreased [Unknown]
  - Dyspnoea [Unknown]
  - Movement disorder [Unknown]
  - Nasopharyngitis [Unknown]
  - Abdominal pain [Unknown]
  - Balance disorder [Unknown]
  - Blood pressure increased [Unknown]
  - Depression [Unknown]
  - Discomfort [Unknown]
  - General physical health deterioration [Unknown]
  - Haemorrhoids [Unknown]
  - Myalgia [Unknown]
  - Nausea [Unknown]
  - Psychomotor hyperactivity [Unknown]
  - Sensitive skin [Unknown]
  - Abdominal pain upper [Unknown]
  - Amnesia [Unknown]
  - Anxiety [Unknown]
  - Dizziness [Unknown]
  - Dyskinesia [Unknown]
  - Flushing [Unknown]
  - Mental disorder [Unknown]
  - Nephrolithiasis [Unknown]
  - Post-traumatic stress disorder [Unknown]
  - Vomiting [Unknown]
  - Back pain [Unknown]
  - Cholelithiasis [Unknown]
  - Cognitive disorder [Unknown]
  - Confusional state [Unknown]
  - Disorientation [Unknown]
  - Nasal congestion [Unknown]
  - Pain [Unknown]
  - Renal pain [Unknown]
  - Skin reaction [Unknown]
  - Stress [Unknown]
  - Suicidal ideation [Unknown]
  - Traumatic shock [Unknown]
  - Abnormal behaviour [Unknown]
  - Blood pressure systolic decreased [Unknown]
  - Crying [Unknown]
  - Drug hypersensitivity [Unknown]
  - Insomnia [Unknown]
  - Malaise [Unknown]
  - Metastases to liver [Unknown]
  - Photopsia [Unknown]
  - Rhinorrhoea [Unknown]
  - Asthenia [Unknown]
  - Cough [Unknown]
  - Injection site pain [Unknown]
  - Intestinal obstruction [Unknown]
  - Speech disorder [Unknown]
  - Inappropriate schedule of product administration [Unknown]
  - Affective disorder [Unknown]
  - Agitation [Unknown]
  - Burning sensation [Unknown]
  - Decreased appetite [Unknown]
  - Depressed mood [Unknown]
  - Fatigue [Unknown]
  - Logorrhoea [Unknown]
  - Oropharyngeal pain [Unknown]
